FAERS Safety Report 16857339 (Version 2)
Quarter: 2019Q4

REPORT INFORMATION
  Report Type: Report from Study
  Country: None (occurrence: IL)
  Receive Date: 20190926
  Receipt Date: 20191107
  Transmission Date: 20200122
  Serious: Yes (Hospitalization)
  Sender: FDA-Public Use
  Company Number: IL-ABBVIE-17K-082-1983426-00

PATIENT
  Age: 65 Year
  Sex: Male

DRUGS (7)
  1. DUODOPA [Suspect]
     Active Substance: CARBIDOPA\LEVODOPA
     Dosage: CMD- 6 ML, CFR- 3.7 ML/ HOUR, CED- 1.5 ML, CND- 1.7ML/HOUR
     Route: 050
  2. DUODOPA [Suspect]
     Active Substance: CARBIDOPA\LEVODOPA
     Indication: PARKINSON^S DISEASE
     Dosage: MD- 8.5 ML, CD - 3.7 ML, ED 2.5 ML
     Route: 050
     Dates: start: 20140219
  3. DUODOPA [Suspect]
     Active Substance: CARBIDOPA\LEVODOPA
     Dosage: CMD- 10.0 ML, CFD- 3.7 ML/HOUR, CED- 1.5 ML
     Route: 050
  4. DUODOPA [Suspect]
     Active Substance: CARBIDOPA\LEVODOPA
     Dosage: CMD- 6 ML, CCR- 3.7 ML/ HOUR, CED- 1.5 ML, CND- 1.2ML/HOUR
     Route: 050
  5. DUODOPA [Suspect]
     Active Substance: CARBIDOPA\LEVODOPA
     Dosage: MD-10ML: CONTINUES RATE: 4ML/HOUR, CURRENT ED-1.5ML?DOSE INCREASED
     Route: 050
  6. CANNABIS SATIVA OIL [Suspect]
     Active Substance: CANNABIS SATIVA SUBSP. INDICA TOP
     Indication: PRODUCT USED FOR UNKNOWN INDICATION
     Route: 065
  7. SINEMET [Concomitant]
     Active Substance: CARBIDOPA\LEVODOPA
     Indication: PRODUCT USED FOR UNKNOWN INDICATION
     Dosage: INCREASED FROM 1 PILL AT NIGHT TO ONE AND A HALF PILL
     Route: 065

REACTIONS (26)
  - Musculoskeletal disorder [Unknown]
  - Poor quality sleep [Not Recovered/Not Resolved]
  - Gait disturbance [Recovering/Resolving]
  - On and off phenomenon [Unknown]
  - Bone pain [Unknown]
  - Loss of personal independence in daily activities [Unknown]
  - Procedural pain [Unknown]
  - Joint range of motion decreased [Unknown]
  - Pain [Unknown]
  - On and off phenomenon [Recovering/Resolving]
  - Abdominal distension [Unknown]
  - Pain in extremity [Recovering/Resolving]
  - Muscle spasms [Unknown]
  - Asthenia [Unknown]
  - Constipation [Recovering/Resolving]
  - Hyperchlorhydria [Unknown]
  - Urinary incontinence [Unknown]
  - Stoma site erythema [Unknown]
  - Therapeutic product effect incomplete [Unknown]
  - Nocturia [Unknown]
  - Pollakiuria [Unknown]
  - Stoma site pain [Unknown]
  - Spinal stenosis [Unknown]
  - Dizziness [Unknown]
  - Malaise [Recovering/Resolving]
  - Stoma site discharge [Unknown]

NARRATIVE: CASE EVENT DATE: 201705
